FAERS Safety Report 4279864-0 (Version None)
Quarter: 2004Q1

REPORT INFORMATION
  Report Type: 
  Country: None (occurrence: None)
  Receive Date: 20040128
  Receipt Date: 20040120
  Transmission Date: 20041129
  Serious: Yes (Other)
  Sender: FDA-Public Use
  Company Number: GB-BRISTOL-MYERS SQUIBB COMPANY-12482980

PATIENT
  Age: 55 Year
  Sex: Female

DRUGS (3)
  1. CARBOPLATIN [Suspect]
     Dosage: TOTAL DOSE MG/DAY
  2. PACLITAXEL [Suspect]
     Dosage: TOTAL DOSE MG/DAY
  3. GEMCITABINE [Suspect]

REACTIONS (3)
  - ARTHRALGIA [None]
  - DYSPNOEA [None]
  - PALPITATIONS [None]
